FAERS Safety Report 10628562 (Version 1)
Quarter: 2014Q4

REPORT INFORMATION
  Report Type: Spontaneous
  Country: US (occurrence: US)
  Receive Date: 20141205
  Receipt Date: 20141205
  Transmission Date: 20150529
  Serious: No
  Sender: FDA-Public Use
  Company Number: US-BRISTOL-MYERS SQUIBB COMPANY-20287207

PATIENT
  Age: 54 Year
  Sex: Female

DRUGS (1)
  1. KOMBIGLYZE XR [Suspect]
     Active Substance: METFORMIN HYDROCHLORIDE\SAXAGLIPTIN HYDROCHLORIDE
     Dosage: 1 DF = 2.5/1000 UNIT NOS.
     Dates: start: 20140122, end: 2014

REACTIONS (4)
  - Vomiting [Unknown]
  - Pancreatic enzymes increased [Unknown]
  - Tenderness [Unknown]
  - Renal impairment [Unknown]
